FAERS Safety Report 9805183 (Version 1)
Quarter: 2014Q1

REPORT INFORMATION
  Report Type: Spontaneous
  Country: FR (occurrence: FR)
  Receive Date: 20140109
  Receipt Date: 20140109
  Transmission Date: 20141002
  Serious: Yes (Hospitalization)
  Sender: FDA-Public Use
  Company Number: FR-009507513-1401FRA001747

PATIENT
  Sex: Male

DRUGS (4)
  1. VICTRELIS [Suspect]
     Dosage: UNK
     Route: 048
     Dates: start: 20131216, end: 20131229
  2. COPEGUS [Suspect]
     Dosage: UNK
     Dates: end: 20131229
  3. PEGASYS [Suspect]
     Dosage: UNK
     Dates: end: 20131229
  4. LAROXYL [Suspect]

REACTIONS (2)
  - Lung disorder [Unknown]
  - Toxicity to various agents [Unknown]
